FAERS Safety Report 17517044 (Version 1)
Quarter: 2020Q1

REPORT INFORMATION
  Report Type: Spontaneous
  Country: US (occurrence: US)
  Receive Date: 20200307
  Receipt Date: 20200307
  Transmission Date: 20200409
  Serious: Yes (Disabling)
  Sender: FDA-Public Use
  Company Number: None

PATIENT
  Age: 4 Year
  Sex: Male
  Weight: 30.15 kg

DRUGS (2)
  1. FLINSTONES WITH IRON VITAMIN [Concomitant]
  2. MONTELUKAST [Suspect]
     Active Substance: MONTELUKAST SODIUM
     Indication: ASTHMA
     Route: 048
     Dates: start: 20180608, end: 20190209

REACTIONS (3)
  - Agitation [None]
  - Anxiety [None]
  - Aggression [None]

NARRATIVE: CASE EVENT DATE: 20181203
